FAERS Safety Report 5824502-6 (Version None)
Quarter: 2008Q3

REPORT INFORMATION
  Report Type: 
  Country: None (occurrence: None)
  Receive Date: 20080722
  Receipt Date: 20080708
  Transmission Date: 20090109
  Serious: Yes (Death, Hospitalization)
  Sender: FDA-Public Use
  Company Number: MK-6028642

PATIENT
  Age: 48 Year
  Sex: Male
  Weight: 118 kg

DRUGS (4)
  1. SERTRALINE [Suspect]
     Indication: DEPRESSION
     Dosage: 100 MG; ORAL
     Route: 048
     Dates: start: 20060314, end: 20060728
  2. ATORVASTATIN CALCIUM [Suspect]
     Indication: DRUG USE FOR UNKNOWN INDICATION
  3. QUETIAPINE FUMARATE [Suspect]
     Indication: DRUG USE FOR UNKNOWN INDICATION
  4. ARIPIPRAZOLE [Concomitant]

REACTIONS (3)
  - HEPATIC STEATOSIS [None]
  - OEDEMA [None]
  - PULMONARY CONGESTION [None]
